FAERS Safety Report 15179033 (Version 2)
Quarter: 2018Q3

REPORT INFORMATION
  Report Type: Report from Study
  Country: None (occurrence: US)
  Receive Date: 20180723
  Receipt Date: 20180801
  Transmission Date: 20181010
  Serious: Yes (Hospitalization, Other)
  Sender: FDA-Public Use
  Company Number: US-ABBVIE-18K-163-2335561-00

PATIENT
  Age: 75 Year
  Sex: Male

DRUGS (2)
  1. HUMIRA [Suspect]
     Active Substance: ADALIMUMAB
     Indication: CROHN^S DISEASE
     Route: 058
     Dates: end: 201804
  2. HUMIRA [Suspect]
     Active Substance: ADALIMUMAB
     Route: 058
     Dates: start: 2018, end: 20180622

REACTIONS (10)
  - Dyspnoea [Unknown]
  - Clostridium difficile infection [Unknown]
  - Vomiting [Recovering/Resolving]
  - Blood pressure decreased [Unknown]
  - Dizziness postural [Unknown]
  - Superinfection [Unknown]
  - Weight decreased [Unknown]
  - Pancreas infection [Unknown]
  - Hiccups [Recovered/Resolved]
  - Cholecystectomy [Recovering/Resolving]

NARRATIVE: CASE EVENT DATE: 2018
